FAERS Safety Report 6417707-7 (Version None)
Quarter: 2009Q4

REPORT INFORMATION
  Report Type: 
  Country: None (occurrence: None)
  Receive Date: 20091028
  Receipt Date: 20091016
  Transmission Date: 20100525
  Serious: No
  Sender: FDA-Public Use
  Company Number: BE-GENENTECH-286093

PATIENT
  Sex: Male
  Weight: 18 kg

DRUGS (1)
  1. NUTROPIN AQ [Suspect]
     Indication: GROWTH HORMONE DEFICIENCY
     Dosage: 0.5 MG, QD
     Route: 058
     Dates: start: 20071001, end: 20090621

REACTIONS (1)
  - DERMATITIS EXFOLIATIVE [None]
